FAERS Safety Report 25213302 (Version 1)
Quarter: 2025Q2

REPORT INFORMATION
  Report Type: Spontaneous
  Country: US (occurrence: US)
  Receive Date: 20250418
  Receipt Date: 20250418
  Transmission Date: 20250717
  Serious: Yes (Other)
  Sender: PFIZER
  Company Number: US-PFIZER INC-202500076444

PATIENT
  Age: 74 Year
  Sex: Female

DRUGS (6)
  1. IBRANCE [Suspect]
     Active Substance: PALBOCICLIB
     Route: 048
     Dates: start: 20250403
  2. ANASTROZOLE [Concomitant]
     Active Substance: ANASTROZOLE
  3. DOXYLAMINE SUCCINATE [Concomitant]
     Active Substance: DOXYLAMINE SUCCINATE
  4. POLYETHYLENE GLYCOL 3350 [Concomitant]
     Active Substance: POLYETHYLENE GLYCOL 3350
  5. SODIUM FLUORIDE [Concomitant]
     Active Substance: SODIUM FLUORIDE
  6. VIACTIV [CALCIUM;COLECALCIFEROL] [Concomitant]

REACTIONS (2)
  - Renal failure [Unknown]
  - Liver function test increased [Unknown]
